FAERS Safety Report 17376214 (Version 1)
Quarter: 2020Q1

REPORT INFORMATION
  Report Type: Spontaneous
  Country: SI (occurrence: SI)
  Receive Date: 20200206
  Receipt Date: 20200206
  Transmission Date: 20200409
  Serious: Yes (Other)
  Sender: FDA-Public Use
  Company Number: SI-TEVA-2020-SI-1181992

PATIENT
  Age: 70 Year
  Sex: Male

DRUGS (5)
  1. CANNABIS [Concomitant]
     Active Substance: CANNABIS SATIVA SUBSP. INDICA TOP
     Dosage: CBD OIL
     Route: 054
  2. PRENESSA 4 MG [Concomitant]
  3. PACLITAXIN 6 MG/ML [Suspect]
     Active Substance: PACLITAXEL
     Indication: THYMOMA
     Dosage: 6 MG/ML CONCENTRATE FOR SOLUTION FOR INFUSION
     Route: 042
     Dates: start: 20191213, end: 20200106
  4. CONCOR 1.25 MG [Concomitant]
     Active Substance: BISOPROLOL FUMARATE
  5. EMOZUL 20 MG [Concomitant]
     Dosage: 20 MG

REACTIONS (1)
  - Infusion related reaction [Recovered/Resolved]

NARRATIVE: CASE EVENT DATE: 20200106
